FAERS Safety Report 8073005-X (Version None)
Quarter: 2011Q4

REPORT INFORMATION
  Report Type: 
  Country: None (occurrence: None)
  Receive Date: 20111221
  Receipt Date: 20111027
  Transmission Date: 20120403
  Serious: Yes (Life-Threatening, Hospitalization, Other)
  Sender: FDA-Public Use
  Company Number: PHEH2011US03048

PATIENT
  Age: 21 Year
  Sex: Female
  Weight: 112 kg

DRUGS (5)
  1. EXJADE [Suspect]
     Indication: SICKLE CELL ANAEMIA WITH CRISIS
     Dosage: 2000 MG, DAILY, ORAL
     Route: 048
     Dates: start: 20100101
  2. PERCOCET [Concomitant]
  3. LOTENSIN [Concomitant]
  4. HYDROXYUREA [Concomitant]
  5. MS CONTIN [Concomitant]

REACTIONS (2)
  - SICKLE CELL ANAEMIA WITH CRISIS [None]
  - CONDITION AGGRAVATED [None]
